FAERS Safety Report 7508631-7 (Version None)
Quarter: 2011Q2

REPORT INFORMATION
  Report Type: 
  Country: None (occurrence: None)
  Receive Date: 20110527
  Receipt Date: 20101020
  Transmission Date: 20111010
  Serious: No
  Sender: FDA-Public Use
  Company Number: A0497202A

PATIENT
  Age: 52 Year
  Sex: Female

DRUGS (5)
  1. STEROIDS [Concomitant]
  2. VENTOLIN [Suspect]
     Indication: ASTHMA
     Dosage: 2PUFF AS REQUIRED
     Route: 055
  3. IBUPROFEN [Concomitant]
  4. FLOVENT [Concomitant]
  5. VIT C [Concomitant]

REACTIONS (5)
  - ORAL DISCOMFORT [None]
  - PRODUCT QUALITY ISSUE [None]
  - DRUG INEFFECTIVE [None]
  - WHEEZING [None]
  - THROAT IRRITATION [None]
